FAERS Safety Report 7427243-7 (Version None)
Quarter: 2011Q2

REPORT INFORMATION
  Report Type: 
  Country: None (occurrence: None)
  Receive Date: 20110420
  Receipt Date: 20110415
  Transmission Date: 20111010
  Serious: No
  Sender: FDA-Public Use
  Company Number: US-PFIZER INC-2011075524

PATIENT
  Sex: Female
  Weight: 53.061 kg

DRUGS (2)
  1. ALAVERT [Suspect]
     Indication: RHINORRHOEA
     Dosage: 10 MG, DAILY
     Route: 048
     Dates: start: 20110402
  2. VITAMINS [Concomitant]

REACTIONS (1)
  - DRUG INEFFECTIVE [None]
